FAERS Safety Report 23996560 (Version 2)
Quarter: 2024Q3

REPORT INFORMATION
  Report Type: Spontaneous
  Country: US (occurrence: US)
  Receive Date: 20240620
  Receipt Date: 20240705
  Transmission Date: 20241016
  Serious: Yes (Other)
  Sender: TEVA
  Company Number: US-TEVA-VS-3210133

PATIENT
  Age: 35 Year
  Sex: Female

DRUGS (5)
  1. DOXYCYCLINE [Suspect]
     Active Substance: DOXYCYCLINE\DOXYCYCLINE HYCLATE
     Indication: Dermatitis
     Route: 065
  2. ESTRADIOL [Suspect]
     Active Substance: ESTRADIOL
     Indication: Lichen sclerosus
     Dosage: TOPICAL ESTRADIOL 0.01%
     Route: 061
  3. METHOTREXATE [Concomitant]
     Active Substance: METHOTREXATE
     Indication: Lichen sclerosus
     Route: 065
  4. FOLIC ACID [Concomitant]
     Active Substance: FOLIC ACID
     Indication: Lichen sclerosus
     Route: 065
  5. CLOBETASOL [Suspect]
     Active Substance: CLOBETASOL
     Indication: Lichen sclerosus
     Route: 061

REACTIONS (2)
  - Drug ineffective [Unknown]
  - Oesophagitis [Unknown]
